FAERS Safety Report 15961659 (Version 1)
Quarter: 2019Q1

REPORT INFORMATION
  Report Type: Report from Study
  Country: US (occurrence: US)
  Receive Date: 20190214
  Receipt Date: 20190214
  Transmission Date: 20190417
  Serious: No
  Sender: FDA-Public Use
  Company Number: PHEH2019US006448

PATIENT
  Sex: Female

DRUGS (1)
  1. ILARIS [Suspect]
     Active Substance: CANAKINUMAB
     Indication: FAMILIAL MEDITERRANEAN FEVER
     Route: 058

REACTIONS (9)
  - Familial mediterranean fever [Unknown]
  - Fatigue [Unknown]
  - Arthralgia [Unknown]
  - Erythema [Unknown]
  - Back pain [Unknown]
  - Rash [Unknown]
  - Condition aggravated [Unknown]
  - Pyrexia [Unknown]
  - Dyspnoea [Unknown]
